FAERS Safety Report 25724049 (Version 1)
Quarter: 2025Q3

REPORT INFORMATION
  Report Type: Spontaneous
  Country: US (occurrence: US)
  Receive Date: 20250826
  Receipt Date: 20250826
  Transmission Date: 20251021
  Serious: Yes (Hospitalization)
  Sender: ALEXION PHARMACEUTICALS
  Company Number: US-AstraZeneca-CH-00936547A

PATIENT
  Age: 58 Year
  Sex: Female
  Weight: 88.45 kg

DRUGS (2)
  1. FASENRA [Suspect]
     Active Substance: BENRALIZUMAB
     Indication: Asthma
     Dosage: 30 MILLIGRAM, Q8W
     Dates: start: 20220606
  2. FASENRA [Suspect]
     Active Substance: BENRALIZUMAB

REACTIONS (4)
  - Chest pain [Recovering/Resolving]
  - Blood pressure abnormal [Recovering/Resolving]
  - Arrhythmia [Recovering/Resolving]
  - Influenza [Recovering/Resolving]

NARRATIVE: CASE EVENT DATE: 20250817
